FAERS Safety Report 9251497 (Version 1)
Quarter: 2013Q1

REPORT INFORMATION
  Report Type: Spontaneous
  Country: US (occurrence: None)
  Receive Date: 20130305
  Receipt Date: 20130305
  Transmission Date: 20140127
  Serious: Yes (Hospitalization)
  Sender: FDA-Public Use
  Company Number: 163-21880-12063446

PATIENT
  Age: 82 Year
  Sex: Female
  Weight: 46.72 kg

DRUGS (7)
  1. REVLIMID [Suspect]
     Indication: PLASMA CELL MYELOMA
     Dosage: 25 MG, QD FOR 28 DAYS, PO
     Dates: start: 20120531
  2. CITRACAL (CALCIUM CITRATE) [Concomitant]
  3. GUAIFENESIN (GUAIFENESIN) [Concomitant]
  4. JANUVIA (SITAGLIPTIN PHOSPHATE) [Concomitant]
  5. MAGNESIUM (MAGNESIUM) [Concomitant]
  6. METFORMIN (METFORMIN) [Concomitant]
  7. WARFARIN (WARFARIN) [Concomitant]

REACTIONS (1)
  - Lobar pneumonia [None]
